FAERS Safety Report 8574355-0 (Version None)
Quarter: 2012Q3

REPORT INFORMATION
  Report Type: 
  Country: None (occurrence: None)
  Receive Date: 20120806
  Receipt Date: 20120723
  Transmission Date: 20120928
  Serious: Yes (Hospitalization)
  Sender: FDA-Public Use
  Company Number: US-009507513-1207USA011267

PATIENT

DRUGS (5)
  1. ACEON [Suspect]
     Dosage: 4 MG, QD
  2. ZOCOR [Suspect]
     Dosage: 40 MG, QD
  3. PANTOPRAZOLE [Suspect]
     Dosage: 40 MG, QD
  4. BISOPROLOL FUMARATE [Suspect]
     Dosage: 1.25 MG, QD
  5. CLOPIDOGREL [Suspect]
     Dosage: 75 MG, QD

REACTIONS (1)
  - HEPATITIS CHOLESTATIC [None]
